FAERS Safety Report 10436568 (Version 1)
Quarter: 2014Q3

REPORT INFORMATION
  Report Type: Spontaneous
  Country: US (occurrence: US)
  Receive Date: 20140908
  Receipt Date: 20140908
  Transmission Date: 20150326
  Serious: Yes (Other)
  Sender: FDA-Public Use
  Company Number: US-BRISTOL-MYERS SQUIBB COMPANY-20215224

PATIENT
  Age: 8 Year
  Sex: Male

DRUGS (3)
  1. CLONIDINE. [Concomitant]
     Active Substance: CLONIDINE
  2. CONCERTA [Concomitant]
     Active Substance: METHYLPHENIDATE HYDROCHLORIDE
  3. ABILIFY [Suspect]
     Active Substance: ARIPIPRAZOLE

REACTIONS (3)
  - Convulsion [Unknown]
  - Malaise [Unknown]
  - Off label use [Unknown]
